FAERS Safety Report 4543164-1 (Version None)
Quarter: 2004Q4

REPORT INFORMATION
  Report Type: 
  Country: None (occurrence: None)
  Receive Date: 20041222
  Receipt Date: 20041207
  Transmission Date: 20050328
  Serious: Yes (Life-Threatening)
  Sender: FDA-Public Use
  Company Number: SAGL-ZLB/04/30/BEL

PATIENT
  Age: 79 Year
  Sex: Female

DRUGS (1)
  1. SANDOGLOBULIN [Suspect]
     Indication: HEPARIN-INDUCED THROMBOCYTOPENIA
     Dosage: 19 G, I.V.
     Route: 042

REACTIONS (4)
  - ANXIETY [None]
  - BRONCHOSPASM [None]
  - HYPERHIDROSIS [None]
  - HYPERSENSITIVITY [None]
